FAERS Safety Report 9747276 (Version 1)
Quarter: 2013Q4

REPORT INFORMATION
  Report Type: Spontaneous
  Country: CH (occurrence: CH)
  Receive Date: 20131212
  Receipt Date: 20131212
  Transmission Date: 20140711
  Serious: Yes (Hospitalization)
  Sender: FDA-Public Use
  Company Number: CH-ROCHE-1314771

PATIENT
  Age: 42 Year
  Sex: Female
  Weight: 76 kg

DRUGS (21)
  1. KYTRIL [Suspect]
     Indication: HODGKIN^S DISEASE
     Route: 041
     Dates: start: 20131111, end: 20131113
  2. FLUCTINE [Suspect]
     Indication: DEPRESSION
     Route: 048
     Dates: end: 20131112
  3. NATULAN [Suspect]
     Indication: HODGKIN^S DISEASE
     Route: 048
     Dates: start: 20131111, end: 20131111
  4. PASPERTIN (SWITZERLAND) [Suspect]
     Indication: NAUSEA
     Route: 048
     Dates: start: 20131111, end: 20131113
  5. PASPERTIN (SWITZERLAND) [Suspect]
     Indication: VOMITING
  6. ETOPOPHOS [Concomitant]
     Route: 042
     Dates: start: 20131111, end: 20131113
  7. BACTRIM [Concomitant]
     Route: 048
     Dates: start: 20131111
  8. CONCOR [Concomitant]
     Route: 048
  9. DEXAMETHASON [Concomitant]
     Route: 048
     Dates: start: 20131107, end: 20131112
  10. NEXIUM [Concomitant]
     Route: 065
     Dates: start: 20131029
  11. SPIRICORT [Concomitant]
     Route: 048
     Dates: start: 20131111
  12. VALTREX [Concomitant]
     Route: 048
     Dates: start: 20131111
  13. ZYLORIC [Concomitant]
     Route: 048
     Dates: start: 20131111
  14. FRAGMIN [Concomitant]
     Route: 058
     Dates: start: 20131028, end: 20131114
  15. HUMALOG [Concomitant]
     Dosage: AS REQUIRED
     Route: 058
     Dates: start: 20131108, end: 20131114
  16. INSULATARD [Concomitant]
     Route: 058
     Dates: start: 20131112, end: 20131112
  17. DOXORUBICIN [Concomitant]
     Route: 042
     Dates: start: 20131111, end: 20131111
  18. UROMITEXAN [Concomitant]
     Route: 042
     Dates: start: 20131111, end: 20131111
  19. UROMITEXAN [Concomitant]
     Route: 042
     Dates: start: 20131111, end: 20131112
  20. ENDOXAN [Concomitant]
     Route: 042
     Dates: start: 20131111, end: 20131111
  21. DOSPIR [Concomitant]
     Route: 065
     Dates: start: 20131111, end: 20131114

REACTIONS (13)
  - Serotonin syndrome [Recovered/Resolved]
  - Nausea [Recovered/Resolved]
  - Vomiting [Recovered/Resolved]
  - Flushing [Recovered/Resolved]
  - Mydriasis [Recovered/Resolved]
  - Nervousness [Recovered/Resolved]
  - Dyspnoea [Recovered/Resolved]
  - Tremor [Recovered/Resolved]
  - Hyperreflexia [Recovered/Resolved]
  - Tachycardia [Recovered/Resolved]
  - Headache [Recovered/Resolved]
  - Hyperhidrosis [Recovered/Resolved]
  - Anxiety [Recovered/Resolved]
